FAERS Safety Report 8422919-7 (Version None)
Quarter: 2012Q2

REPORT INFORMATION
  Report Type: 
  Country: None (occurrence: None)
  Receive Date: 20120608
  Receipt Date: 20120531
  Transmission Date: 20120825
  Serious: Yes (Congenital Anomaly)
  Sender: FDA-Public Use
  Company Number: US-GLAXOSMITHKLINE-A0980488A

PATIENT
  Sex: Male

DRUGS (1)
  1. PAXIL [Suspect]
     Indication: PRODUCT USED FOR UNKNOWN INDICATION
     Route: 064

REACTIONS (5)
  - FOETAL EXPOSURE DURING PREGNANCY [None]
  - BICUSPID AORTIC VALVE [None]
  - ATRIAL SEPTAL DEFECT [None]
  - AORTIC VALVE INCOMPETENCE [None]
  - CARDIAC MURMUR [None]
